FAERS Safety Report 13424682 (Version 1)
Quarter: 2017Q2

REPORT INFORMATION
  Report Type: Report from Study
  Country: GB (occurrence: GB)
  Receive Date: 20170410
  Receipt Date: 20170410
  Transmission Date: 20170830
  Serious: Yes (Death, Hospitalization)
  Sender: FDA-Public Use
  Company Number: GB-CELGENEUS-GBR-20170400350

PATIENT

DRUGS (1)
  1. REVLIMID [Suspect]
     Active Substance: LENALIDOMIDE
     Indication: PLASMA CELL MYELOMA
     Route: 048

REACTIONS (8)
  - Cardiac disorder [Unknown]
  - Adverse event [Unknown]
  - Death [Fatal]
  - Infection [Unknown]
  - Anxiety [Unknown]
  - Respiratory disorder [Unknown]
  - Depression [Unknown]
  - Plasma cell myeloma [Unknown]
